FAERS Safety Report 7774010-0 (Version None)
Quarter: 2011Q3

REPORT INFORMATION
  Report Type: 
  Country: None (occurrence: None)
  Receive Date: 20110923
  Receipt Date: 20110914
  Transmission Date: 20111222
  Serious: Yes (Death)
  Sender: FDA-Public Use
  Company Number: JP-GENZYME-THYM-1002583

PATIENT
  Sex: Female
  Weight: 46 kg

DRUGS (1)
  1. THYMOGLOBULIN [Suspect]
     Indication: APLASTIC ANAEMIA
     Dosage: 3.3 MG/KG, QD
     Route: 042
     Dates: start: 20101006, end: 20101010

REACTIONS (1)
  - CEREBRAL HAEMORRHAGE [None]
